FAERS Safety Report 18668845 (Version 1)
Quarter: 2020Q4

REPORT INFORMATION
  Report Type: Spontaneous
  Country: JP (occurrence: JP)
  Receive Date: 20201228
  Receipt Date: 20201228
  Transmission Date: 20210114
  Serious: Yes (Other)
  Sender: FDA-Public Use
  Company Number: JP-BRISTOL-MYERS SQUIBB COMPANY-BMS-2020-102707

PATIENT
  Age: 68 Year
  Sex: Male
  Weight: 63.4 kg

DRUGS (2)
  1. OPDIVO [Suspect]
     Active Substance: NIVOLUMAB
     Indication: METASTATIC RENAL CELL CARCINOMA
     Dosage: 240 MILLIGRAM
     Route: 041
     Dates: start: 20201009, end: 20201111
  2. YERVOY [Suspect]
     Active Substance: IPILIMUMAB
     Indication: METASTATIC RENAL CELL CARCINOMA
     Dosage: 1 MILLIGRAM/KILOGRAM
     Route: 041
     Dates: start: 20201009, end: 20201111

REACTIONS (4)
  - Radiation pneumonitis [Not Recovered/Not Resolved]
  - Erythema [Recovering/Resolving]
  - Rash erythematous [Recovering/Resolving]
  - Genital erythema [Recovering/Resolving]

NARRATIVE: CASE EVENT DATE: 20201118
